FAERS Safety Report 9236694 (Version 1)
Quarter: 2013Q2

REPORT INFORMATION
  Report Type: Report from Study
  Country: CN (occurrence: CN)
  Receive Date: 20130417
  Receipt Date: 20130417
  Transmission Date: 20140414
  Serious: Yes (Hospitalization)
  Sender: FDA-Public Use
  Company Number: CN-ROCHE-1214440

PATIENT
  Age: 61 Year
  Sex: Male
  Weight: 60 kg

DRUGS (3)
  1. MYCOPHENOLATE MOFETIL [Suspect]
     Indication: RENAL TRANSPLANT
     Route: 048
     Dates: start: 1999
  2. CICLOSPORIN A [Concomitant]
     Indication: RENAL TRANSPLANT
     Route: 048
     Dates: start: 1999
  3. PREDNISONE [Concomitant]
     Indication: RENAL TRANSPLANT
     Route: 048
     Dates: start: 1999

REACTIONS (3)
  - Transplant rejection [Recovering/Resolving]
  - Hydrothorax [Recovering/Resolving]
  - Diabetes mellitus [Recovering/Resolving]
